FAERS Safety Report 21325378 (Version 2)
Quarter: 2022Q4

REPORT INFORMATION
  Report Type: Spontaneous
  Country: US (occurrence: US)
  Receive Date: 20220912
  Receipt Date: 20221108
  Transmission Date: 20230113
  Serious: No
  Sender: FDA-Public Use
  Company Number: US-SA-SAC20220908000421

PATIENT
  Sex: Female
  Weight: 72.5 kg

DRUGS (4)
  1. DUPIXENT [Suspect]
     Active Substance: DUPILUMAB
     Indication: Asthma
     Dosage: 300 MG, QOW
     Route: 058
  2. PANCREATIN [Suspect]
     Active Substance: PANCRELIPASE
     Dosage: UNK
  3. XOLAIR [Concomitant]
     Active Substance: OMALIZUMAB
  4. PROAIR DIGIHALER [Concomitant]
     Active Substance: ALBUTEROL SULFATE

REACTIONS (4)
  - Drug hypersensitivity [Unknown]
  - Eye pruritus [Unknown]
  - Eye swelling [Unknown]
  - Hypersensitivity [Unknown]
